FAERS Safety Report 8421670-7 (Version None)
Quarter: 2012Q2

REPORT INFORMATION
  Report Type: 
  Country: None (occurrence: None)
  Receive Date: 20120601
  Receipt Date: 20120524
  Transmission Date: 20120825
  Serious: Yes (Hospitalization)
  Sender: FDA-Public Use
  Company Number: 2012MA006586

PATIENT
  Age: 31 Year
  Sex: Female

DRUGS (1)
  1. SERTRALINE HYDROCHLORIDE [Suspect]
     Dosage: 50 MG;QD;PO
     Route: 048
     Dates: start: 20120226

REACTIONS (5)
  - NECK PAIN [None]
  - HEAD DISCOMFORT [None]
  - HEADACHE [None]
  - DIZZINESS [None]
  - MUSCULOSKELETAL STIFFNESS [None]
